FAERS Safety Report 9422128 (Version 2)
Quarter: 2013Q3

REPORT INFORMATION
  Report Type: Spontaneous
  Country: US (occurrence: US)
  Receive Date: 20130726
  Receipt Date: 20130829
  Transmission Date: 20140515
  Serious: Yes (Other)
  Sender: FDA-Public Use
  Company Number: US-PFIZER INC-2013216956

PATIENT
  Age: 46 Year
  Sex: Female
  Weight: 54.42 kg

DRUGS (3)
  1. DILANTIN [Suspect]
     Indication: CONVULSION
     Dosage: 100 MG, 3X/DAY
  2. LIBRIUM [Concomitant]
     Indication: ALCOHOL WITHDRAWAL SYNDROME
     Dosage: 5 MG, 2X/DAY
     Dates: start: 201307
  3. ATENOLOL [Concomitant]
     Indication: HYPERTENSION
     Dosage: 25 MG, 1X/DAY

REACTIONS (1)
  - Grand mal convulsion [Recovered/Resolved]
